FAERS Safety Report 22292473 (Version 1)
Quarter: 2023Q2

REPORT INFORMATION
  Report Type: Spontaneous
  Country: US (occurrence: US)
  Receive Date: 20230508
  Receipt Date: 20230508
  Transmission Date: 20230721
  Serious: No
  Sender: FDA-Public Use
  Company Number: US-GBT-022170

PATIENT
  Sex: Female

DRUGS (2)
  1. OXBRYTA [Suspect]
     Active Substance: VOXELOTOR
     Indication: Sickle cell disease
     Route: 048
     Dates: start: 202205
  2. OXBRYTA [Suspect]
     Active Substance: VOXELOTOR
     Indication: Sickle cell disease
     Dosage: TAKE 2- 500 MG TABLETS MONDAY THROUGH FRIDAY AND TAKE 3- 500 MG TABLETS ON?THE WEEKENDS
     Route: 048

REACTIONS (3)
  - Abdominal pain upper [Recovered/Resolved]
  - Diarrhoea [Recovered/Resolved]
  - Off label use [Unknown]
